FAERS Safety Report 7484419-0 (Version None)
Quarter: 2011Q2

REPORT INFORMATION
  Report Type: 
  Country: None (occurrence: None)
  Receive Date: 20110517
  Receipt Date: 20110510
  Transmission Date: 20111010
  Serious: Yes (Life-Threatening, Other)
  Sender: FDA-Public Use
  Company Number: JP-JNJFOC-20110500110

PATIENT
  Age: 64 Year
  Sex: Female

DRUGS (7)
  1. FILGRASTIM [Suspect]
     Indication: PRODUCT USED FOR UNKNOWN INDICATION
     Dosage: PATIENT WAS GIVEN 3 CYCLES
     Route: 065
     Dates: start: 20110401, end: 20110407
  2. MAGNESIUM OXIDE [Concomitant]
  3. DOXIL [Suspect]
     Indication: OVARIAN CANCER RECURRENT
     Dosage: PATIENT WAS GIVEN 3 CYCLES
     Route: 042
  4. MUCOSTA [Concomitant]
     Route: 048
  5. DOXIL [Suspect]
     Dosage: PATIENT WAS GIVEN 3 CYCLES
     Route: 042
     Dates: start: 20110114
  6. DOXIL [Suspect]
     Dosage: PATIENT WAS GIVEN 3 CYCLES
     Route: 042
     Dates: end: 20110318
  7. DEPAS [Concomitant]
     Route: 048

REACTIONS (1)
  - INTERSTITIAL LUNG DISEASE [None]
